FAERS Safety Report 6266232-5 (Version None)
Quarter: 2009Q3

REPORT INFORMATION
  Report Type: 
  Country: None (occurrence: None)
  Receive Date: 20090713
  Receipt Date: 20090701
  Transmission Date: 20100115
  Serious: Yes (Hospitalization, Other)
  Sender: FDA-Public Use
  Company Number: JP-PFIZER INC-2009235752

PATIENT
  Age: 70 Year

DRUGS (2)
  1. FARMORUBICIN [Suspect]
     Indication: BREAST CANCER RECURRENT
     Route: 042
  2. ENDOXAN [Suspect]
     Indication: BREAST CANCER RECURRENT

REACTIONS (5)
  - ACUTE MYOCARDIAL INFARCTION [None]
  - CARDIOGENIC SHOCK [None]
  - CYTOMEGALOVIRUS INFECTION [None]
  - PANCYTOPENIA [None]
  - SEPTIC SHOCK [None]
